FAERS Safety Report 8041306-7 (Version None)
Quarter: 2012Q1

REPORT INFORMATION
  Report Type: 
  Country: None (occurrence: None)
  Receive Date: 20120112
  Receipt Date: 20120109
  Transmission Date: 20120608
  Serious: No
  Sender: FDA-Public Use
  Company Number: US-PFIZER INC-2012007143

PATIENT
  Sex: Female

DRUGS (3)
  1. DICYCLOMINE [Concomitant]
     Indication: GASTROINTESTINAL MOTILITY DISORDER
     Dosage: 20 MG, UNK
  2. NORVASC [Suspect]
     Indication: HYPERTENSION
     Dosage: 5 MG, 2X/DAY
     Dates: end: 20110101
  3. VALIUM [Concomitant]
     Indication: STRESS
     Dosage: 10 MG, 2X/DAY

REACTIONS (1)
  - TREMOR [None]
